FAERS Safety Report 5088107-X (Version None)
Quarter: 2006Q3

REPORT INFORMATION
  Report Type: 
  Country: None (occurrence: None)
  Receive Date: 20060727
  Receipt Date: 20060623
  Transmission Date: 20061208
  Serious: Yes (Other)
  Sender: FDA-Public Use
  Company Number: 2006022764

PATIENT
  Age: 58 Year
  Sex: Male
  Weight: 88.905 kg

DRUGS (3)
  1. LYRICA [Suspect]
     Indication: PAIN
     Dosage: 75 MG (75 MG, 1 IN 1D)
     Route: 065
     Dates: start: 20060210
  2. OXYCONTIN [Concomitant]
  3. ZOCOR [Concomitant]

REACTIONS (5)
  - ACTIVITIES OF DAILY LIVING IMPAIRED [None]
  - DRUG INEFFECTIVE [None]
  - FEELING ABNORMAL [None]
  - HUNGER [None]
  - LETHARGY [None]
